FAERS Safety Report 4796837-X (Version None)
Quarter: 2005Q4

REPORT INFORMATION
  Report Type: 
  Country: None (occurrence: None)
  Receive Date: 20051013
  Receipt Date: 20051012
  Transmission Date: 20060501
  Serious: Yes (Death)
  Sender: FDA-Public Use
  Company Number: GB-SANOFI-SYNTHELABO-F01200502116

PATIENT
  Age: 77 Year
  Sex: Female
  Weight: 70 kg

DRUGS (2)
  1. OXALIPLATIN [Suspect]
     Indication: COLORECTAL CANCER
     Dates: start: 20051006, end: 20051006
  2. CAPECITABINE [Suspect]
     Indication: COLORECTAL CANCER

REACTIONS (3)
  - ABDOMINAL PAIN [None]
  - DEATH [None]
  - HYPOTENSION [None]
